FAERS Safety Report 6331802-2 (Version None)
Quarter: 2009Q3

REPORT INFORMATION
  Report Type: 
  Country: None (occurrence: None)
  Receive Date: 20090826
  Receipt Date: 19950306
  Transmission Date: 20100115
  Serious: Yes (Death, Hospitalization)
  Sender: FDA-Public Use
  Company Number: 2009008819

PATIENT
  Age: 55 Year
  Sex: Male
  Weight: 67 kg

DRUGS (2)
  1. MODAFINIL [Suspect]
     Indication: NARCOLEPSY
     Dosage: 4 TABLETS DAILY, ORAL
     Route: 048
     Dates: start: 19920101, end: 19950305
  2. ANAFRANIL [Concomitant]

REACTIONS (4)
  - BUNDLE BRANCH BLOCK LEFT [None]
  - CARDIO-RESPIRATORY ARREST [None]
  - COMA [None]
  - VENTRICULAR FIBRILLATION [None]
